FAERS Safety Report 5507713-9 (Version None)
Quarter: 2007Q4

REPORT INFORMATION
  Report Type: 
  Country: None (occurrence: None)
  Receive Date: 20071106
  Receipt Date: 20071102
  Transmission Date: 20080405
  Serious: Yes (Other)
  Sender: FDA-Public Use
  Company Number: A0685526A

PATIENT
  Age: 61 Year
  Sex: Female
  Weight: 61.8 kg

DRUGS (4)
  1. TUMS E-X TABLETS, ASSORTED FRUIT [Suspect]
  2. PAXIL [Concomitant]
  3. DIOVAN [Concomitant]
  4. EXCEDRIN (MIGRAINE) [Concomitant]

REACTIONS (11)
  - ANAPHYLACTIC REACTION [None]
  - BLOOD PRESSURE DECREASED [None]
  - CIRCULATORY COLLAPSE [None]
  - DIARRHOEA [None]
  - DIZZINESS [None]
  - ERYTHEMA [None]
  - EXPIRED DRUG ADMINISTERED [None]
  - HYPOTENSION [None]
  - NAUSEA [None]
  - OEDEMA PERIPHERAL [None]
  - VOMITING [None]
